FAERS Safety Report 9445586 (Version 2)
Quarter: 2013Q3

REPORT INFORMATION
  Report Type: Report from Study
  Country: US (occurrence: US)
  Receive Date: 20130807
  Receipt Date: 20130816
  Transmission Date: 20140515
  Serious: Yes (Hospitalization)
  Sender: FDA-Public Use
  Company Number: US-ABBOTT-13P-163-1127432-00

PATIENT
  Age: 28 Year
  Sex: Female

DRUGS (4)
  1. HUMIRA [Suspect]
     Indication: COLITIS ULCERATIVE
     Dosage: 1ST PART OF LOADING DOSE: 80MG ON 7/27/2013
     Dates: start: 20130727, end: 20130727
  2. ASACOL [Concomitant]
     Indication: COLITIS ULCERATIVE
  3. PREDNISONE [Concomitant]
     Indication: COLITIS ULCERATIVE
     Route: 048
  4. UNKNOWN MEDICATION [Concomitant]
     Indication: GASTROOESOPHAGEAL REFLUX DISEASE
     Dosage: DAILY

REACTIONS (4)
  - Infection [Unknown]
  - Pain [Unknown]
  - Pyrexia [Recovering/Resolving]
  - Chills [Not Recovered/Not Resolved]
